FAERS Safety Report 4406487-2 (Version None)
Quarter: 2004Q3

REPORT INFORMATION
  Report Type: 
  Country: None (occurrence: None)
  Receive Date: 20040716
  Receipt Date: 20040709
  Transmission Date: 20050211
  Serious: Yes (Hospitalization)
  Sender: FDA-Public Use
  Company Number: 200412173GDS

PATIENT
  Sex: 0

DRUGS (1)
  1. ASPIRIN [Suspect]
     Indication: RHEUMATIC FEVER

REACTIONS (8)
  - ALANINE AMINOTRANSFERASE INCREASED [None]
  - ASPARTATE AMINOTRANSFERASE INCREASED [None]
  - HEPATOTOXICITY [None]
  - HYPOPNOEA [None]
  - IRRITABILITY [None]
  - SOMNOLENCE [None]
  - STOMACH DISCOMFORT [None]
  - THERAPEUTIC AGENT TOXICITY [None]
